FAERS Safety Report 5401940-7 (Version None)
Quarter: 2007Q3

REPORT INFORMATION
  Report Type: 
  Country: None (occurrence: None)
  Receive Date: 20070726
  Receipt Date: 20070629
  Transmission Date: 20080115
  Serious: Yes (Other)
  Sender: FDA-Public Use
  Company Number: 6035170

PATIENT
  Age: 46 Year
  Sex: Female

DRUGS (6)
  1. GLUCOPHAGE [Suspect]
     Indication: DIABETES MELLITUS
     Dosage: 500 MG (500 MG, 1 IN 1 D)
  2. PHENOBARBITAL TAB [Suspect]
     Indication: EPILEPSY
     Dosage: 90 MG (30 MG, 3 IN 1 D)
  3. CRESTOR [Suspect]
     Indication: DRUG USE FOR UNKNOWN INDICATION
     Dosage: 10 MG (10 MG, 1 IN 1 D) ORAL
     Route: 048
  4. RAMIPRIL [Suspect]
     Indication: DRUG USE FOR UNKNOWN INDICATION
  5. CENTYL (BENDROFLUMETHIAZIDE) [Suspect]
     Indication: HYPERTENSION
     Dosage: 5 MG (5 MG, 1 IN 1 D) ORAL
     Route: 048
  6. DIAMICRON (GLICLAZIDE) [Suspect]
     Indication: DIABETES MELLITUS
     Dosage: 90 MG (30 MG, 3 IN 1 D)

REACTIONS (2)
  - BLOOD CHOLESTEROL INCREASED [None]
  - BLOOD TRIGLYCERIDES INCREASED [None]
